FAERS Safety Report 9231627 (Version 1)
Quarter: 2013Q2

REPORT INFORMATION
  Report Type: Spontaneous
  Country: US (occurrence: US)
  Receive Date: 20130415
  Receipt Date: 20130415
  Transmission Date: 20140414
  Serious: No
  Sender: FDA-Public Use
  Company Number: US-B.I. PHARMACEUTICALS,INC./RIDGEFIELD-2013-BI-08673BP

PATIENT
  Age: 73 Year
  Sex: Male
  Weight: 143 kg

DRUGS (7)
  1. SPIRIVA [Suspect]
     Indication: CHRONIC OBSTRUCTIVE PULMONARY DISEASE
     Dosage: 18 MCG
     Route: 055
     Dates: start: 2012
  2. ATORVASTATIN [Concomitant]
     Indication: BLOOD CHOLESTEROL INCREASED
  3. MULTIVITAMIN WITH IRON WITHOUT VITAMIN K [Concomitant]
  4. WARFARIN [Concomitant]
     Indication: CARDIAC VALVE DISEASE
  5. FOSINOPRIL [Concomitant]
     Indication: HYPERTENSION
  6. POTASSIUM [Concomitant]
  7. FUROSEMIDE [Concomitant]

REACTIONS (2)
  - Dyspnoea [Not Recovered/Not Resolved]
  - Product quality issue [Unknown]
